FAERS Safety Report 5823783-2 (Version None)
Quarter: 2008Q3

REPORT INFORMATION
  Report Type: 
  Country: None (occurrence: None)
  Receive Date: 20080725
  Receipt Date: 20080718
  Transmission Date: 20090109
  Serious: Yes (Hospitalization, Other)
  Sender: FDA-Public Use
  Company Number: US-MERCK-0710USA02697

PATIENT
  Age: 82 Year
  Sex: Female
  Weight: 66 kg

DRUGS (13)
  1. FOSAMAX [Suspect]
     Indication: OSTEOPOROSIS
     Route: 048
     Dates: start: 19970601
  2. FOSAMAX [Suspect]
     Route: 048
     Dates: end: 20070201
  3. SYNTHROID [Concomitant]
     Indication: HYPOTHYROIDISM
     Route: 065
  4. DIOVAN [Concomitant]
     Route: 065
     Dates: end: 20020401
  5. TOPROL-XL [Concomitant]
     Route: 065
  6. ASPIRIN [Concomitant]
     Route: 065
  7. GEMFIBROZIL [Concomitant]
     Route: 065
  8. FUROSEMIDE [Concomitant]
     Route: 065
  9. SERAX [Concomitant]
     Route: 065
  10. CLARITIN [Concomitant]
     Route: 065
  11. PEPCID AC [Concomitant]
     Route: 065
  12. MAALOX [Concomitant]
     Route: 065
  13. TYLENOL [Concomitant]
     Route: 065

REACTIONS (28)
  - ACTINOMYCOSIS [None]
  - ADVERSE DRUG REACTION [None]
  - ADVERSE EVENT [None]
  - ANGINA PECTORIS [None]
  - BONE DISORDER [None]
  - BRONCHIAL HYPERREACTIVITY [None]
  - BRONCHITIS [None]
  - CAROTID ARTERY DISEASE [None]
  - CAROTID ARTERY STENOSIS [None]
  - CEREBROVASCULAR ACCIDENT [None]
  - DRUG HYPERSENSITIVITY [None]
  - EYELID PTOSIS [None]
  - GALLBLADDER DISORDER [None]
  - HYPOVOLAEMIA [None]
  - INFLUENZA [None]
  - MACULAR DEGENERATION [None]
  - MUSCULOSKELETAL PAIN [None]
  - MYOCARDIAL INFARCTION [None]
  - NODULE [None]
  - OSTEOMYELITIS [None]
  - OSTEONECROSIS [None]
  - PAIN IN EXTREMITY [None]
  - PNEUMONIA [None]
  - RENAL FAILURE ACUTE [None]
  - RENAL FAILURE CHRONIC [None]
  - TRACHEOBRONCHITIS [None]
  - TRANSIENT ISCHAEMIC ATTACK [None]
  - WEIGHT DECREASED [None]
